FAERS Safety Report 8331912-4 (Version None)
Quarter: 2012Q2

REPORT INFORMATION
  Report Type: 
  Country: None (occurrence: None)
  Receive Date: 20120502
  Receipt Date: 20120425
  Transmission Date: 20120825
  Serious: No
  Sender: FDA-Public Use
  Company Number: US-AMGEN-USASP2012024594

PATIENT
  Age: 54 Year
  Sex: Female
  Weight: 78.005 kg

DRUGS (7)
  1. BENADRYL [Concomitant]
     Dosage: 25 MG,  8-6 DEGREE PRN
     Route: 048
  2. MELOXICAM [Concomitant]
     Dosage: 15 MG, QD
     Route: 048
  3. ENBREL [Suspect]
     Indication: PSORIATIC ARTHROPATHY
     Dosage: 50 MG, 2 TIMES/WK
     Route: 058
     Dates: start: 20120403, end: 20120417
  4. PAXIL [Concomitant]
     Dosage: 10 MG, QD
     Route: 048
  5. CLOBETASOL PROPIONATE [Concomitant]
     Dosage: 0.05 %, BID
     Route: 061
  6. ENBREL [Suspect]
     Indication: PSORIASIS
  7. HYDROCHLOROTHIAZIDE [Concomitant]
     Dosage: 37.5 -25 MG, QD, 1/2 TAB
     Route: 048

REACTIONS (5)
  - HYPERSENSITIVITY [None]
  - INJECTION SITE HAEMATOMA [None]
  - INJECTION SITE REACTION [None]
  - INJECTION SITE PAIN [None]
  - INJECTION SITE SWELLING [None]
